FAERS Safety Report 24744061 (Version 2)
Quarter: 2025Q1

REPORT INFORMATION
  Report Type: Spontaneous
  Country: JP (occurrence: JP)
  Receive Date: 20241217
  Receipt Date: 20250103
  Transmission Date: 20250409
  Serious: Yes (Hospitalization)
  Sender: BRAINTREE
  Company Number: JP-BRAINTREE LABORATORIES, INC.-2024BTE00829

PATIENT
  Age: 46 Year
  Sex: Male

DRUGS (3)
  1. MAGNESIUM SULFATE\POTASSIUM SULFATE\SODIUM SULFATE [Suspect]
     Active Substance: MAGNESIUM SULFATE\POTASSIUM SULFATE\SODIUM SULFATE
     Indication: Colonoscopy
     Dosage: 480 ML, 1X/DAY
     Route: 048
  2. SENNOSIDES [Concomitant]
     Active Substance: SENNOSIDES
     Indication: Colonoscopy
     Dosage: 2 DOSAGE FORM, 1X/DAY
     Route: 048
  3. SODIUM PICOSULFATE [Concomitant]
     Active Substance: SODIUM PICOSULFATE
     Indication: Colonoscopy
     Dosage: 1 DOSAGE FORM, 1X/DAY
     Route: 048

REACTIONS (1)
  - Oesophageal rupture [Unknown]
